FAERS Safety Report 9314022 (Version 1)
Quarter: 2013Q2

REPORT INFORMATION
  Report Type: Spontaneous
  Country: US (occurrence: None)
  Receive Date: 20130524
  Receipt Date: 20130524
  Transmission Date: 20140414
  Serious: Yes (Life-Threatening, Hospitalization, Disabling, Other)
  Sender: FDA-Public Use
  Company Number: None

PATIENT
  Sex: 0

DRUGS (1)
  1. DEPO PROVERA [Suspect]
     Indication: CONTRACEPTION
     Dosage: ONE SHOT ONCE EVERY 3 MONTH IM
     Route: 030
     Dates: start: 19880326, end: 20060821

REACTIONS (1)
  - Pulmonary embolism [None]
